FAERS Safety Report 4543606-1 (Version None)
Quarter: 2005Q1

REPORT INFORMATION
  Report Type: 
  Country: None (occurrence: None)
  Receive Date: 20050103
  Receipt Date: 20041207
  Transmission Date: 20050727
  Serious: Yes (Other)
  Sender: FDA-Public Use
  Company Number: 2004JP002109

PATIENT
  Age: 77 Year
  Sex: Female
  Weight: 38 kg

DRUGS (10)
  1. CEFAMEZIN [Suspect]
     Indication: DRUG USE FOR UNKNOWN INDICATION
     Dosage: 1G PER DAY
     Route: 042
     Dates: start: 20041125, end: 20041125
  2. DIPRIVAN [Suspect]
     Dosage: 350MG PER DAY
     Route: 042
     Dates: start: 20041125, end: 20041125
  3. VECURONIUM BROMIDE [Concomitant]
     Route: 042
     Dates: start: 20041125, end: 20041125
  4. FENTANEST [Concomitant]
     Route: 042
     Dates: start: 20041125, end: 20041125
  5. EPHEDRINE HYDROCHLORIDE [Concomitant]
     Route: 042
     Dates: start: 20041125, end: 20041125
  6. PERDIPINE [Concomitant]
     Dates: start: 20041125
  7. VOLTAREN [Concomitant]
     Dates: start: 20041125
  8. PRIMPERAN INJ [Concomitant]
     Dates: start: 20041125
  9. ATARAX [Concomitant]
     Dates: start: 20041125
  10. DOPAMINE HYDROCHLORIDE [Concomitant]
     Dates: start: 20041125

REACTIONS (12)
  - ALANINE AMINOTRANSFERASE INCREASED [None]
  - ANAESTHETIC COMPLICATION [None]
  - ANURIA [None]
  - ASPARTATE AMINOTRANSFERASE INCREASED [None]
  - BLOOD LACTATE DEHYDROGENASE INCREASED [None]
  - CHROMATURIA [None]
  - DIALYSIS [None]
  - MYOGLOBIN BLOOD INCREASED [None]
  - MYOGLOBINAEMIA [None]
  - MYOGLOBINURIA [None]
  - RENAL FAILURE ACUTE [None]
  - RENAL TUBULAR DISORDER [None]
